FAERS Safety Report 5289058-8 (Version None)
Quarter: 2007Q2

REPORT INFORMATION
  Report Type: 
  Country: None (occurrence: None)
  Receive Date: 20070406
  Receipt Date: 20070327
  Transmission Date: 20071010
  Serious: Yes (Other)
  Sender: FDA-Public Use
  Company Number: US-PFIZER INC-2007025978

PATIENT
  Sex: Female
  Weight: 63.5 kg

DRUGS (6)
  1. CHANTIX [Suspect]
     Indication: EX-SMOKER
  2. WARFARIN SODIUM [Concomitant]
  3. BETA BLOCKING AGENTS [Concomitant]
  4. GLUCOPHAGE [Concomitant]
  5. ACETYLSALICYLIC ACID SRT [Concomitant]
  6. PENTOXIFYLLINE [Concomitant]

REACTIONS (3)
  - HAEMORRHAGIC STROKE [None]
  - INTERNATIONAL NORMALISED RATIO INCREASED [None]
  - STENT PLACEMENT [None]
